FAERS Safety Report 4976449-5 (Version None)
Quarter: 2006Q2

REPORT INFORMATION
  Report Type: 
  Country: None (occurrence: None)
  Receive Date: 20060412
  Receipt Date: 20060331
  Transmission Date: 20061013
  Serious: Yes (Other)
  Sender: FDA-Public Use
  Company Number: 2006045628

PATIENT
  Age: 20 Year
  Sex: Male
  Weight: 106.5953 kg

DRUGS (1)
  1. VIAGRA [Suspect]
     Indication: ILL-DEFINED DISORDER

REACTIONS (4)
  - BLOOD PRESSURE INCREASED [None]
  - ERECTILE DYSFUNCTION [None]
  - SELF-MEDICATION [None]
  - VISION BLURRED [None]
